FAERS Safety Report 6253083-0 (Version None)
Quarter: 2009Q3

REPORT INFORMATION
  Report Type: 
  Country: None (occurrence: None)
  Receive Date: 20090701
  Receipt Date: 20090626
  Transmission Date: 20100115
  Serious: Yes (Death)
  Sender: FDA-Public Use
  Company Number: PHEH2009US06808

PATIENT
  Sex: Male

DRUGS (1)
  1. TASIGNA [Suspect]
     Indication: CHRONIC MYELOID LEUKAEMIA
     Dosage: 400 MG, Q12H
     Dates: start: 20090213, end: 20090319

REACTIONS (3)
  - BACTERIAL INFECTION [None]
  - CHRONIC MYELOID LEUKAEMIA [None]
  - FUNGAL INFECTION [None]
